FAERS Safety Report 8769563 (Version 1)
Quarter: 2012Q4

REPORT INFORMATION
  Report Type: 
  Country: US (occurrence: US)
  Receive Date: 20120905
  Receipt Date: 20120905
  Transmission Date: 20130627
  Serious: Yes (Hospitalization)
  Sender: FDA-Public Use
  Company Number: US-BAYER-2012-090692

PATIENT
  Age: 29 Year
  Sex: Female

DRUGS (4)
  1. YAZ [Suspect]
  2. COCAINE [Concomitant]
     Dosage: 1 time a week
  3. ADIPEX [Concomitant]
     Route: 048
  4. POTASSIUM [Concomitant]
     Indication: HYPOKALAEMIA

REACTIONS (1)
  - Acute myocardial infarction [None]
